FAERS Safety Report 14434535 (Version 1)
Quarter: 2018Q1

REPORT INFORMATION
  Report Type: Spontaneous
  Country: US (occurrence: US)
  Receive Date: 20180124
  Receipt Date: 20180124
  Transmission Date: 20180509
  Serious: No
  Sender: FDA-Public Use
  Company Number: US-TARO-2017TAR00302

PATIENT
  Age: 63 Year
  Sex: Female
  Weight: 81.63 kg

DRUGS (8)
  1. LANTUS [Concomitant]
     Active Substance: INSULIN GLARGINE
  2. ATORVASTATIN [Concomitant]
     Active Substance: ATORVASTATIN
  3. HCTZ [Concomitant]
     Active Substance: HYDROCHLOROTHIAZIDE
  4. LISINOPRIL. [Concomitant]
     Active Substance: LISINOPRIL
  5. NOVOLOG [Concomitant]
     Active Substance: INSULIN ASPART
  6. CLOTRIMAZOLE VAGINAL CREAM USP 1% 7 DAY [Suspect]
     Active Substance: CLOTRIMAZOLE
     Indication: FUNGAL INFECTION
     Dosage: 1 DOSAGE UNITS, ONCE
     Route: 067
     Dates: start: 20170417, end: 201704
  7. GABAPENTIN. [Concomitant]
     Active Substance: GABAPENTIN
  8. AMLODIPINE [Concomitant]
     Active Substance: AMLODIPINE BESYLATE

REACTIONS (7)
  - Weight decreased [Not Recovered/Not Resolved]
  - Bowel movement irregularity [Not Recovered/Not Resolved]
  - Vulvovaginal candidiasis [Unknown]
  - Back pain [Recovered/Resolved]
  - Vomiting [Not Recovered/Not Resolved]
  - Insomnia [Not Recovered/Not Resolved]
  - Abdominal pain upper [Not Recovered/Not Resolved]

NARRATIVE: CASE EVENT DATE: 201704
